FAERS Safety Report 11512104 (Version 2)
Quarter: 2015Q3

REPORT INFORMATION
  Report Type: Spontaneous
  Country: NL (occurrence: NL)
  Receive Date: 20150916
  Receipt Date: 20150919
  Transmission Date: 20151125
  Serious: Yes (Hospitalization)
  Sender: FDA-Public Use
  Company Number: NL-009507513-1509NLD004873

PATIENT
  Age: 52 Year
  Sex: Male

DRUGS (2)
  1. EZETROL [Suspect]
     Active Substance: EZETIMIBE
     Dosage: HALF TABLET
     Dates: start: 20150904
  2. EZETROL [Suspect]
     Active Substance: EZETIMIBE
     Indication: HYPERCHOLESTEROLAEMIA
     Dosage: 10 MG, QD (1 TABLET OF 10 MG PER DAY)
     Route: 048
     Dates: start: 2009, end: 201508

REACTIONS (14)
  - Gait spastic [Recovered/Resolved]
  - Cough [Unknown]
  - Blood cholesterol decreased [Unknown]
  - Dizziness [Recovered/Resolved]
  - Nausea [Recovered/Resolved with Sequelae]
  - Gait disturbance [Recovered/Resolved]
  - Back disorder [Recovered/Resolved]
  - Myalgia [Recovered/Resolved]
  - Myalgia [Unknown]
  - Feeling abnormal [Recovered/Resolved with Sequelae]
  - Posture abnormal [Recovered/Resolved]
  - Malaise [Recovered/Resolved with Sequelae]
  - Intervertebral disc protrusion [Unknown]
  - Headache [Unknown]

NARRATIVE: CASE EVENT DATE: 2009
